FAERS Safety Report 5425241-6 (Version None)
Quarter: 2007Q3

REPORT INFORMATION
  Report Type: 
  Country: None (occurrence: None)
  Receive Date: 20070824
  Receipt Date: 20070814
  Transmission Date: 20080115
  Serious: No
  Sender: FDA-Public Use
  Company Number: DE-PFIZER INC-2004092974

PATIENT
  Sex: Male
  Weight: 94 kg

DRUGS (4)
  1. SOMAVERT [Suspect]
     Indication: ACROMEGALY
     Route: 058
  2. TESTOSTERONE [Concomitant]
     Dosage: DAILY DOSE:50MG-FREQ:DAILY
  3. CABASERIL [Concomitant]
     Route: 048
  4. LEVOTHYROXINE SODIUM [Concomitant]

REACTIONS (1)
  - NO ADVERSE REACTION [None]
